FAERS Safety Report 10024143 (Version 1)
Quarter: 2014Q1

REPORT INFORMATION
  Report Type: Spontaneous
  Country: US (occurrence: None)
  Receive Date: 20140318
  Receipt Date: 20140318
  Transmission Date: 20141002
  Serious: Yes (Death)
  Sender: FDA-Public Use
  Company Number: 152842

PATIENT
  Age: 11 Year
  Sex: Female

DRUGS (2)
  1. KETAMINE HCL [Suspect]
     Indication: ENDOTRACHEAL INTUBATION
  2. REFER TO ATTACHED LITERATURE ARTICLE [Concomitant]

REACTIONS (1)
  - Cardiac arrest [None]
